FAERS Safety Report 10908322 (Version 1)
Quarter: 2015Q1

REPORT INFORMATION
  Report Type: Spontaneous
  Country: JP (occurrence: JP)
  Receive Date: 20150312
  Receipt Date: 20150312
  Transmission Date: 20150721
  Serious: Yes (Other)
  Sender: FDA-Public Use
  Company Number: JP-ACTELION-A-CH2015-113516

PATIENT
  Age: 72 Year
  Sex: Male

DRUGS (7)
  1. VELETRI [Suspect]
     Active Substance: EPOPROSTENOL
     Dosage: 0.5 NG/KG, PER MIN
     Route: 042
     Dates: start: 20141224
  2. TRACLEER [Suspect]
     Active Substance: BOSENTAN\BOSENTAN MONOHYDRATE
     Indication: PULMONARY ARTERIAL HYPERTENSION
     Dosage: UNK
     Route: 048
     Dates: start: 20141128
  3. VELETRI [Suspect]
     Active Substance: EPOPROSTENOL
     Indication: PULMONARY ARTERIAL HYPERTENSION
     Dosage: UNK
     Route: 042
     Dates: start: 201501, end: 20150220
  4. BERAPROST [Concomitant]
     Active Substance: BERAPROST
     Dosage: UNK
     Dates: start: 201409
  5. OXYGEN. [Concomitant]
     Active Substance: OXYGEN
  6. SILDENAFIL. [Concomitant]
     Active Substance: SILDENAFIL
     Dosage: UNK
     Dates: start: 201409
  7. VELETRI [Suspect]
     Active Substance: EPOPROSTENOL
     Dosage: 15 NG/KG, PER MIN
     Route: 042
     Dates: start: 201501, end: 201501

REACTIONS (3)
  - Chronic obstructive pulmonary disease [Unknown]
  - Pulmonary oedema [Recovered/Resolved]
  - Concomitant disease aggravated [Unknown]

NARRATIVE: CASE EVENT DATE: 20150202
